FAERS Safety Report 7183588-X (Version None)
Quarter: 2010Q4

REPORT INFORMATION
  Report Type: 
  Country: None (occurrence: None)
  Receive Date: 20101222
  Receipt Date: 20101215
  Transmission Date: 20110411
  Serious: Yes (Hospitalization)
  Sender: FDA-Public Use
  Company Number: KR-PFIZER INC-2010170885

PATIENT
  Age: 66 Year

DRUGS (2)
  1. IRINOTECAN HCL [Suspect]
     Indication: NON-SMALL CELL LUNG CANCER
     Dosage: 60 MG/M2, 1X/DAY
     Route: 042
     Dates: start: 20101021, end: 20101126
  2. CISPLATIN [Suspect]
     Indication: NON-SMALL CELL LUNG CANCER
     Dosage: 30 MG/M2, 1X/DAY
     Route: 042
     Dates: start: 20101021, end: 20101126

REACTIONS (1)
  - PNEUMONITIS [None]
